FAERS Safety Report 5622570-8 (Version None)
Quarter: 2008Q1

REPORT INFORMATION
  Report Type: 
  Country: None (occurrence: None)
  Receive Date: 20080114
  Receipt Date: 20071112
  Transmission Date: 20080703
  Serious: Yes (Death, Hospitalization)
  Sender: FDA-Public Use
  Company Number: A03200706497

PATIENT
  Age: 80 Year
  Sex: Male

DRUGS (4)
  1. PLAVIX [Suspect]
     Indication: CAROTID ARTERY OCCLUSION
     Dosage: 75 MG QD - ORAL
     Route: 048
     Dates: start: 20060101
  2. PLAVIX [Suspect]
     Indication: CEREBROVASCULAR ACCIDENT
     Dosage: 75 MG QD - ORAL
     Route: 048
     Dates: start: 20060101
  3. ACETYLSALICYLIC ACID SRT [Concomitant]
  4. METOPROLOL SUCCINATE [Concomitant]

REACTIONS (4)
  - DYSARTHRIA [None]
  - HAEMORRHAGIC STROKE [None]
  - HEMIPLEGIA [None]
  - RESPIRATORY FAILURE [None]
